FAERS Safety Report 9817703 (Version 1)
Quarter: 2014Q1

REPORT INFORMATION
  Report Type: Spontaneous
  Country: US (occurrence: US)
  Receive Date: 20140115
  Receipt Date: 20140115
  Transmission Date: 20141002
  Serious: Yes (Life-Threatening, Other)
  Sender: FDA-Public Use
  Company Number: US-ELI_LILLY_AND_COMPANY-US201401003919

PATIENT
  Age: 50 Year
  Sex: Female

DRUGS (4)
  1. FLUOXETINE HYDROCHLORIDE [Suspect]
     Indication: DEPRESSION
     Dosage: UNK UNK, UNKNOWN
     Route: 065
  2. CLARITHROMYCIN [Interacting]
     Indication: UPPER RESPIRATORY TRACT INFECTION
     Route: 065
  3. HYDROCHLOROTHIAZIDE [Concomitant]
     Indication: HYPERTENSION
     Dosage: UNK UNK, UNKNOWN
     Route: 065
  4. POTASSIUM [Concomitant]
     Indication: SUPPLEMENTATION THERAPY
     Route: 065

REACTIONS (6)
  - Syncope [Unknown]
  - Torsade de pointes [Unknown]
  - Electrocardiogram QT prolonged [Unknown]
  - Hypokalaemia [Unknown]
  - Left atrial dilatation [Unknown]
  - Drug interaction [Unknown]
